FAERS Safety Report 7263457-7 (Version None)
Quarter: 2011Q1

REPORT INFORMATION
  Report Type: 
  Country: None (occurrence: None)
  Receive Date: 20110130
  Receipt Date: 20101105
  Transmission Date: 20110831
  Serious: No
  Sender: FDA-Public Use
  Company Number: US-ABBOTT-10P-163-0683841-00

PATIENT
  Sex: Female
  Weight: 99.88 kg

DRUGS (7)
  1. ALLEGRA [Concomitant]
     Indication: HYPERSENSITIVITY
  2. WELCHOL [Concomitant]
     Indication: BLOOD CHOLESTEROL INCREASED
     Dates: start: 20101028, end: 20101101
  3. UNKNOWN CHOLESTEROL MEDICATION [Suspect]
     Indication: BLOOD CHOLESTEROL INCREASED
     Dates: start: 20090101, end: 20090101
  4. SYNTHROID [Concomitant]
     Indication: HYPOTHYROIDISM
  5. PROTONIX [Concomitant]
     Indication: ABDOMINAL DISCOMFORT
  6. HUMIRA [Suspect]
     Indication: CROHN'S DISEASE
     Dates: start: 20070101
  7. BENICAR [Concomitant]
     Indication: HYPERTENSION

REACTIONS (3)
  - ASPARTATE AMINOTRANSFERASE INCREASED [None]
  - GAMMA-GLUTAMYLTRANSFERASE INCREASED [None]
  - ALANINE AMINOTRANSFERASE INCREASED [None]
